FAERS Safety Report 4802041-9 (Version None)
Quarter: 2005Q4

REPORT INFORMATION
  Report Type: 
  Country: None (occurrence: None)
  Receive Date: 20051018
  Receipt Date: 20050822
  Transmission Date: 20060501
  Serious: Yes (Other)
  Sender: FDA-Public Use
  Company Number: SE-MERCK-0510SWE00022

PATIENT
  Age: 44 Year
  Sex: Female

DRUGS (1)
  1. VIOXX [Suspect]
     Indication: FIBROMYALGIA
     Route: 048

REACTIONS (3)
  - DEPRESSION [None]
  - GASTRIC DISORDER [None]
  - MYOCARDIAL INFARCTION [None]
